FAERS Safety Report 7167815-0 (Version None)
Quarter: 2010Q4

REPORT INFORMATION
  Report Type: 
  Country: None (occurrence: None)
  Receive Date: 20101216
  Receipt Date: 20101206
  Transmission Date: 20110411
  Serious: Yes (Hospitalization, Other)
  Sender: FDA-Public Use
  Company Number: US-ELI_LILLY_AND_COMPANY-US201007002951

PATIENT
  Sex: Male

DRUGS (16)
  1. FORTEO [Suspect]
     Indication: OSTEOPOROSIS
     Dosage: 20 UG, DAILY (1/D)
     Dates: start: 20100208
  2. FORTEO [Suspect]
     Dosage: 20 UG, DAILY (1/D)
     Dates: end: 20100618
  3. FORTEO [Suspect]
     Dosage: 20 UG, DAILY (1/D)
     Dates: start: 20101106
  4. IMODIUM A-D [Concomitant]
     Indication: ANTIDIARRHOEAL SUPPORTIVE CARE
  5. PREDNISONE [Concomitant]
  6. FOLIC ACID [Concomitant]
  7. ALLOPURINOL [Concomitant]
  8. MAXZIDE [Concomitant]
  9. COZAAR [Concomitant]
  10. GABAPENTIN [Concomitant]
  11. TRAMADOL HCL [Concomitant]
     Indication: PAIN
  12. THYROID THERAPY [Concomitant]
  13. VITAMIN D [Concomitant]
     Dosage: 1.25 MG, UNKNOWN
  14. CENTRUM SILVER [Concomitant]
  15. ASPIRIN [Concomitant]
     Dosage: 81 D/F, 1/2 OF 81
  16. CALCIUM 600 PLUS VITAMIN D [Concomitant]

REACTIONS (4)
  - FRACTURE NONUNION [None]
  - INTENTIONAL DRUG MISUSE [None]
  - MEDICATION ERROR [None]
  - OFF LABEL USE [None]
